FAERS Safety Report 10179657 (Version 1)
Quarter: 2014Q2

REPORT INFORMATION
  Report Type: Spontaneous
  Country: US (occurrence: US)
  Receive Date: 20140519
  Receipt Date: 20140519
  Transmission Date: 20141212
  Serious: No
  Sender: FDA-Public Use
  Company Number: US-ROXANE LABORATORIES, INC.-2014-RO-00762RO

PATIENT
  Age: 70 Year
  Sex: Female
  Weight: 71 kg

DRUGS (1)
  1. BALSALAZIDE [Suspect]
     Indication: COLITIS MICROSCOPIC
     Dosage: 6750 MG
     Route: 065
     Dates: start: 2009, end: 20140510

REACTIONS (1)
  - Rash [Not Recovered/Not Resolved]
